FAERS Safety Report 5259328-8 (Version None)
Quarter: 2007Q1

REPORT INFORMATION
  Report Type: 
  Country: None (occurrence: None)
  Receive Date: 20070305
  Receipt Date: 20070226
  Transmission Date: 20070707
  Serious: Yes (Other)
  Sender: FDA-Public Use
  Company Number: TCI2007A00597

PATIENT
  Age: 76 Year
  Sex: Male

DRUGS (5)
  1. LEUPLIN FOR INJECTION KIT3.75 (LEUPROLLIDE ACETATE) (INJECTION) [Suspect]
     Indication: PROSTATE CANCER
     Dosage: 3.75 MG (3.75 MG, 1 IN 28 D) SUBCUTANEOUS
     Route: 058
     Dates: start: 20061226
  2. CHLORMADINONE ACETATE TAB [Concomitant]
  3. MAGLAX (MAGNESIUM OXIDE) (TABLETS) [Concomitant]
  4. LIPOVAS (SIMVASTATIN) (TABLETS) [Concomitant]
  5. FLIVAS (NAFTOPIDIL) (TABLETS) [Concomitant]

REACTIONS (1)
  - STEVENS-JOHNSON SYNDROME [None]
